FAERS Safety Report 4625975-7 (Version None)
Quarter: 2005Q1

REPORT INFORMATION
  Report Type: 
  Country: None (occurrence: None)
  Receive Date: 20050329
  Receipt Date: 20050320
  Transmission Date: 20050727
  Serious: Yes (Hospitalization)
  Sender: FDA-Public Use
  Company Number: 2005047536

PATIENT
  Age: 50 Year
  Sex: Male

DRUGS (7)
  1. NEURONTIN [Suspect]
     Indication: NEUROPATHY
     Dosage: 4800 MG (800 MG, 6 IN 1 D), ORAL
     Route: 048
  2. HYDROMORPHONE HYDROCHLORIDE (HYDSROMORPHONE HYDROCHLORIDE) [Concomitant]
  3. METHADONE (METHADONE) [Concomitant]
  4. CITALOPRAM HYDROBROMIDE [Concomitant]
  5. PROCHLOPERAZINE EDISYLATE (PROCHLORPERAZINE EDISYLATE) [Concomitant]
  6. LEVOFLOXACIN [Concomitant]
  7. MEGACE [Concomitant]

REACTIONS (6)
  - ABDOMINAL PAIN [None]
  - BLOOD ALKALINE PHOSPHATASE INCREASED [None]
  - BLOOD CREATINE INCREASED [None]
  - DIARRHOEA [None]
  - MEDICATION ERROR [None]
  - PNEUMONIA [None]
